FAERS Safety Report 16794356 (Version 1)
Quarter: 2019Q3

REPORT INFORMATION
  Report Type: Spontaneous
  Country: UG (occurrence: UG)
  Receive Date: 20190719
  Receipt Date: 20190719
  Transmission Date: 20191005
  Serious: Yes (Life-Threatening, Hospitalization)
  Sender: FDA-Public Use
  Company Number: None

PATIENT
  Age: 66 Year
  Sex: Male
  Weight: 204 kg

DRUGS (2)
  1. VECURONIUM [Suspect]
     Active Substance: VECURONIUM BROMIDE
     Indication: SURGERY
     Route: 042
     Dates: start: 20190125, end: 20190125
  2. VECURONIUM [Suspect]
     Active Substance: VECURONIUM BROMIDE
     Route: 048
     Dates: start: 20131213, end: 20190126

REACTIONS (1)
  - Angioedema [None]

NARRATIVE: CASE EVENT DATE: 20190125
